FAERS Safety Report 7277896-1 (Version None)
Quarter: 2011Q1

REPORT INFORMATION
  Report Type: 
  Country: None (occurrence: None)
  Receive Date: 20110207
  Receipt Date: 20110124
  Transmission Date: 20110831
  Serious: Yes (Death, Other)
  Sender: FDA-Public Use
  Company Number: DE-ROCHE-685506

PATIENT
  Sex: Female
  Weight: 50 kg

DRUGS (8)
  1. NEXIUM [Concomitant]
     Indication: NAUSEA
     Route: 048
     Dates: start: 20071011, end: 20080605
  2. BEVACIZUMAB [Suspect]
     Route: 042
     Dates: start: 20071011, end: 20080110
  3. TAXOL [Suspect]
     Route: 042
     Dates: start: 20071011, end: 20080110
  4. FENISTIL (DIMETINDENE) [Concomitant]
     Indication: PROPHYLAXIS
     Dosage: ONCE PER CYCLE.
     Route: 042
     Dates: start: 20071011, end: 20081010
  5. DEXA [Concomitant]
     Indication: PROPHYLAXIS
     Dosage: 20 MG PER INTRAVENOUS AND 8 MG PER ORAL.
     Dates: start: 20071011, end: 20080110
  6. ARANESP [Concomitant]
     Indication: ANAEMIA
     Route: 058
     Dates: start: 20071220, end: 20081028
  7. NEUPOGEN [Concomitant]
     Indication: NEUTROPENIA
     Route: 058
     Dates: start: 20071220, end: 20081028
  8. RANITIDINE HCL [Concomitant]
     Indication: PROPHYLAXIS
     Dosage: ONCE PER CYCLE.
     Route: 042
     Dates: start: 20071011, end: 20080110

REACTIONS (3)
  - ASCITES [None]
  - HEPATIC CIRRHOSIS [None]
  - NEOPLASM MALIGNANT [None]
